FAERS Safety Report 18905073 (Version 6)
Quarter: 2022Q2

REPORT INFORMATION
  Report Type: Spontaneous
  Country: JP (occurrence: JP)
  Receive Date: 20210217
  Receipt Date: 20220530
  Transmission Date: 20220721
  Serious: Yes (Hospitalization, Disabling, Other)
  Sender: FDA-Public Use
  Company Number: JP-JNJFOC-20210200775

PATIENT
  Age: 69 Year
  Sex: Male
  Weight: 50.5 kg

DRUGS (30)
  1. DARZALEX [Interacting]
     Active Substance: DARATUMUMAB
     Indication: Plasma cell myeloma
     Route: 041
     Dates: start: 20200413, end: 20200413
  2. DARZALEX [Interacting]
     Active Substance: DARATUMUMAB
     Route: 041
     Dates: start: 20200511, end: 20200511
  3. DARZALEX [Interacting]
     Active Substance: DARATUMUMAB
     Route: 041
     Dates: start: 20200615, end: 20200615
  4. DARZALEX [Interacting]
     Active Substance: DARATUMUMAB
     Route: 041
     Dates: start: 20200824, end: 20200824
  5. DARZALEX [Interacting]
     Active Substance: DARATUMUMAB
     Route: 041
     Dates: start: 20200923, end: 20200923
  6. DARZALEX [Interacting]
     Active Substance: DARATUMUMAB
     Route: 041
     Dates: start: 20201022, end: 20201022
  7. DARZALEX [Interacting]
     Active Substance: DARATUMUMAB
     Route: 041
     Dates: start: 20201125, end: 20201125
  8. DEXAMETHASONE [Suspect]
     Active Substance: DEXAMETHASONE
     Indication: Plasma cell myeloma
     Dosage: DOSE UNKNOWN
     Route: 065
     Dates: start: 2020
  9. LENALIDOMIDE [Concomitant]
     Active Substance: LENALIDOMIDE
     Indication: Plasma cell myeloma
     Route: 048
     Dates: start: 20200413
  10. LENALIDOMIDE [Concomitant]
     Active Substance: LENALIDOMIDE
     Indication: Plasma cell myeloma
     Route: 048
     Dates: start: 20201022
  11. LENALIDOMIDE [Concomitant]
     Active Substance: LENALIDOMIDE
     Indication: Plasma cell myeloma
     Route: 048
     Dates: start: 20201125, end: 20201215
  12. MONTELUKAST [Concomitant]
     Active Substance: MONTELUKAST SODIUM
     Indication: Prophylaxis
     Route: 048
     Dates: start: 20200413, end: 20200415
  13. MONTELUKAST [Concomitant]
     Active Substance: MONTELUKAST SODIUM
     Indication: Prophylaxis
     Route: 048
     Dates: start: 20200511, end: 20200513
  14. MONTELUKAST [Concomitant]
     Active Substance: MONTELUKAST SODIUM
     Indication: Prophylaxis
     Route: 048
     Dates: start: 20200615, end: 20200617
  15. MONTELUKAST [Concomitant]
     Active Substance: MONTELUKAST SODIUM
     Indication: Prophylaxis
     Route: 048
     Dates: start: 20200824, end: 20200826
  16. MONTELUKAST [Concomitant]
     Active Substance: MONTELUKAST SODIUM
     Indication: Prophylaxis
     Route: 048
     Dates: start: 20200923, end: 20200925
  17. MONTELUKAST [Concomitant]
     Active Substance: MONTELUKAST SODIUM
     Indication: Prophylaxis
     Route: 048
     Dates: start: 20201022, end: 20201024
  18. MONTELUKAST [Concomitant]
     Active Substance: MONTELUKAST SODIUM
     Indication: Prophylaxis
     Route: 048
     Dates: start: 20201125, end: 20201127
  19. DIPHENHYDRAMINE [Concomitant]
     Active Substance: DIPHENHYDRAMINE
     Dosage: DOSE UNKNOWN
     Route: 065
  20. SULFAMETHOXAZOLE\TRIMETHOPRIM [Concomitant]
     Active Substance: SULFAMETHOXAZOLE\TRIMETHOPRIM
     Dosage: DOSE UNKNOWN
     Route: 048
  21. FLUCONAZOLE [Concomitant]
     Active Substance: FLUCONAZOLE
     Route: 065
  22. FEBUXOSTAT [Concomitant]
     Active Substance: FEBUXOSTAT
     Route: 048
  23. CLOPIDOGREL [Concomitant]
     Active Substance: CLOPIDOGREL BISULFATE
     Route: 048
  24. ACYCLOVIR [Concomitant]
     Active Substance: ACYCLOVIR
     Route: 065
  25. AZOSEMIDE [Concomitant]
     Active Substance: AZOSEMIDE
     Route: 048
  26. NEXIUM [Concomitant]
     Active Substance: ESOMEPRAZOLE MAGNESIUM
     Route: 048
  27. LEVOFLOXACIN HEMIHYDRATE [Concomitant]
     Active Substance: LEVOFLOXACIN
     Indication: Cystitis
     Route: 048
  28. POLAPREZINC [Concomitant]
     Active Substance: POLAPREZINC
     Route: 048
  29. OLODATEROL HYDROCHLORIDE\TIOTROPIUM BROMIDE MONOHYDRATE [Concomitant]
     Active Substance: OLODATEROL HYDROCHLORIDE\TIOTROPIUM BROMIDE MONOHYDRATE
     Dosage: IN THE MORNING AND EVENING
     Route: 055
  30. SILODOSIN [Concomitant]
     Active Substance: SILODOSIN
     Route: 048

REACTIONS (6)
  - Progressive multifocal leukoencephalopathy [Recovering/Resolving]
  - Renal impairment [Unknown]
  - Syncope [Recovered/Resolved]
  - Fall [Unknown]
  - Fracture [Unknown]
  - Drug interaction [Unknown]

NARRATIVE: CASE EVENT DATE: 20200101
